FAERS Safety Report 12720600 (Version 1)
Quarter: 2016Q3

REPORT INFORMATION
  Report Type: Spontaneous
  Country: BR (occurrence: BR)
  Receive Date: 20160907
  Receipt Date: 20160907
  Transmission Date: 20161109
  Serious: Yes (Hospitalization)
  Sender: FDA-Public Use
  Company Number: BR-PFIZER INC-2016399937

PATIENT
  Age: 81 Year
  Sex: Male
  Weight: 81 kg

DRUGS (22)
  1. CLOPIDOGREL [Concomitant]
     Active Substance: CLOPIDOGREL BISULFATE
  2. PROCORALAN [Concomitant]
     Active Substance: IVABRADINE
  3. VITAMINS WITH MINERALS [Concomitant]
     Active Substance: MINERALS\VITAMINS
  4. VYTORIN [Concomitant]
     Active Substance: EZETIMIBE\SIMVASTATIN
  5. ADDERA D3 [Concomitant]
     Active Substance: CHOLECALCIFEROL
  6. DHEA [Concomitant]
     Active Substance: PRASTERONE
  7. TRIIODOTHYRONINE [Concomitant]
     Active Substance: LIOTHYRONINE SODIUM
  8. VITAMIN C [Concomitant]
     Active Substance: ASCORBIC ACID
  9. ASPIRINA [Concomitant]
     Active Substance: ASPIRIN
  10. DIGOXIN. [Concomitant]
     Active Substance: DIGOXIN
  11. LASIX [Concomitant]
     Active Substance: FUROSEMIDE
  12. ICTUS [Concomitant]
     Active Substance: CARVEDILOL
  13. JANUMET XR [Concomitant]
     Active Substance: METFORMIN HYDROCHLORIDE\SITAGLIPTIN PHOSPHATE
  14. MELATONIN [Concomitant]
     Active Substance: MELATONIN
  15. GENOTROPIN [Suspect]
     Active Substance: SOMATROPIN
     Dosage: 0.3MG OR 3 CLICKS, UNKNOWN WHICH ONE, 1X/DAY
     Route: 030
  16. DIAMICRON MR [Concomitant]
     Active Substance: GLICLAZIDE
  17. ALDACTONE [Concomitant]
     Active Substance: SPIRONOLACTONE
  18. EUTHYROX [Concomitant]
     Active Substance: LEVOTHYROXINE SODIUM
  19. BENEFLORA /02221101/ [Concomitant]
  20. ALLOPURINOL. [Concomitant]
     Active Substance: ALLOPURINOL
  21. SOMALGIN [Concomitant]
     Active Substance: ASPIRIN\DIHYDROXYALUMINUM AMINOACETATE ANHYDROUS\MAGNESIUM CARBONATE
  22. SUSTRATE [Concomitant]
     Active Substance: PROPATYL NITRATE

REACTIONS (4)
  - Cardiac failure [Not Recovered/Not Resolved]
  - Infarction [Recovering/Resolving]
  - Incorrect route of drug administration [Not Recovered/Not Resolved]
  - Product preparation error [Unknown]

NARRATIVE: CASE EVENT DATE: 2006
